FAERS Safety Report 17418417 (Version 8)
Quarter: 2020Q2

REPORT INFORMATION
  Report Type: Spontaneous
  Country: US (occurrence: US)
  Receive Date: 20200214
  Receipt Date: 20200527
  Transmission Date: 20200713
  Serious: Yes (Life-Threatening, Hospitalization, Other)
  Sender: FDA-Public Use
  Company Number: US-UNITED THERAPEUTICS-UNT-2020-002445

PATIENT
  Age: 52 Year
  Sex: Female
  Weight: 50.79 kg

DRUGS (4)
  1. ADCIRCA [Concomitant]
     Active Substance: TADALAFIL
     Indication: PULMONARY ARTERIAL HYPERTENSION
     Dosage: UNK
     Route: 065
  2. REMODULIN [Suspect]
     Active Substance: TREPROSTINIL
     Indication: PULMONARY ARTERIAL HYPERTENSION
     Dosage: 0.093 ?G/KG, CONTINUING
     Route: 058
     Dates: start: 20131104
  3. REMODULIN [Suspect]
     Active Substance: TREPROSTINIL
     Dosage: 0.090 ?G/KG, CONTINUING
     Route: 058
  4. REMODULIN [Suspect]
     Active Substance: TREPROSTINIL
     Dosage: 0.0743 ?G/KG, CONTINUING
     Route: 058

REACTIONS (16)
  - Respiratory failure [Recovering/Resolving]
  - Dysarthria [Unknown]
  - Lethargy [Unknown]
  - Seizure [Unknown]
  - Unresponsive to stimuli [Unknown]
  - Coma [Unknown]
  - Fall [Recovered/Resolved with Sequelae]
  - White blood cell count decreased [Unknown]
  - Cardiogenic shock [Recovering/Resolving]
  - Staphylococcal infection [Unknown]
  - Paralysis [Unknown]
  - Contusion [Unknown]
  - Right ventricular failure [Recovering/Resolving]
  - Device breakage [Unknown]
  - Sepsis [Recovering/Resolving]
  - Pneumonia [Unknown]

NARRATIVE: CASE EVENT DATE: 202002
